FAERS Safety Report 13219732 (Version 1)
Quarter: 2017Q1

REPORT INFORMATION
  Report Type: Spontaneous
  Country: US (occurrence: US)
  Receive Date: 20170210
  Receipt Date: 20170210
  Transmission Date: 20170428
  Serious: No
  Sender: FDA-Public Use
  Company Number: US-HORIZON-VIM-0017-2017

PATIENT
  Age: 59 Year
  Sex: Female

DRUGS (1)
  1. VIMOVO [Suspect]
     Active Substance: ESOMEPRAZOLE MAGNESIUM\NAPROXEN
     Indication: RHEUMATOID ARTHRITIS
     Dosage: 1 TABLET DAILY
     Route: 048
     Dates: start: 201604, end: 201701

REACTIONS (2)
  - Protein total increased [Unknown]
  - Off label use [Unknown]
